FAERS Safety Report 11006112 (Version 2)
Quarter: 2015Q2

REPORT INFORMATION
  Report Type: Spontaneous
  Country: FR (occurrence: FR)
  Receive Date: 20150409
  Receipt Date: 20150417
  Transmission Date: 20150821
  Serious: Yes (Other)
  Sender: FDA-Public Use
  Company Number: FR-GE HEALTHCARE MEDICAL DIAGNOSTICS-VISP-PR-1504S-0100

PATIENT
  Age: 64 Year
  Sex: Female

DRUGS (2)
  1. VISIPAQUE [Suspect]
     Active Substance: IODIXANOL
     Indication: DIAGNOSTIC PROCEDURE
  2. VISIPAQUE [Suspect]
     Active Substance: IODIXANOL
     Indication: ENDOMETRIAL NEOPLASM
     Route: 042
     Dates: start: 20150331, end: 20150331

REACTIONS (5)
  - Dizziness [Recovered/Resolved]
  - Face oedema [Recovered/Resolved]
  - Blister [Recovered/Resolved]
  - Contrast media allergy [Recovered/Resolved]
  - Nausea [Recovered/Resolved]

NARRATIVE: CASE EVENT DATE: 20150331
